FAERS Safety Report 6528783-5 (Version None)
Quarter: 2010Q1

REPORT INFORMATION
  Report Type: 
  Country: None (occurrence: None)
  Receive Date: 20100106
  Receipt Date: 20091224
  Transmission Date: 20100710
  Serious: Yes (Other)
  Sender: FDA-Public Use
  Company Number: PHHY2009MX58491

PATIENT
  Age: 82 Year
  Sex: Male

DRUGS (3)
  1. DIOVAN HCT [Suspect]
     Indication: HYPERTENSION
     Dosage: 1 TABLET (160/12.5  MG) PER DAY
     Dates: start: 20070301
  2. SUCRALFATE [Concomitant]
  3. CINITAPRIDE [Concomitant]

REACTIONS (3)
  - ABDOMINAL NEOPLASM [None]
  - BILIARY NEOPLASM [None]
  - VOMITING [None]
